FAERS Safety Report 12246365 (Version 5)
Quarter: 2016Q2

REPORT INFORMATION
  Report Type: Spontaneous
  Country: US (occurrence: US)
  Receive Date: 20160407
  Receipt Date: 20160623
  Transmission Date: 20160815
  Serious: Yes (Hospitalization, Other)
  Sender: FDA-Public Use
  Company Number: US-GILEAD-2016-0206769

PATIENT
  Age: 55 Year
  Sex: Male
  Weight: 154 kg

DRUGS (14)
  1. PROAIR HFA [Concomitant]
     Active Substance: ALBUTEROL SULFATE
     Indication: SLEEP APNOEA SYNDROME
  2. SOVALDI [Suspect]
     Active Substance: SOFOSBUVIR
     Indication: HEPATITIS C
     Dosage: 400 MG, UNK
     Route: 048
     Dates: start: 20160217, end: 20160405
  3. TEMAZEPAM. [Suspect]
     Active Substance: TEMAZEPAM
     Indication: INSOMNIA
     Dosage: 20 DF, UNK
     Route: 048
  4. AMBIEN [Suspect]
     Active Substance: ZOLPIDEM TARTRATE
     Dosage: UNK
     Route: 065
     Dates: start: 201604, end: 20160405
  5. PROMETHAZINE [Suspect]
     Active Substance: PROMETHAZINE\PROMETHAZINE HYDROCHLORIDE
     Indication: NAUSEA
     Dosage: UNK
     Route: 048
  6. HYDROCHLOROTHIAZIDE. [Concomitant]
     Active Substance: HYDROCHLOROTHIAZIDE
     Indication: HYPERTENSION
     Route: 048
  7. OMEPRAZOLE. [Concomitant]
     Active Substance: OMEPRAZOLE
     Route: 048
  8. TEMAZEPAM. [Suspect]
     Active Substance: TEMAZEPAM
     Dosage: 15 MG, UNK
     Route: 048
  9. XANAX [Concomitant]
     Active Substance: ALPRAZOLAM
  10. AMBIEN [Suspect]
     Active Substance: ZOLPIDEM TARTRATE
     Indication: INSOMNIA
     Dosage: 50 DF, UNK
     Route: 065
  11. CELEXA [Concomitant]
     Active Substance: CITALOPRAM HYDROBROMIDE
     Indication: ANXIETY
     Route: 065
  12. RIBAVIRIN. [Suspect]
     Active Substance: RIBAVIRIN
     Indication: HEPATITIS C
     Dosage: UNK
     Route: 065
     Dates: start: 20160217, end: 20160405
  13. WELLBUTRIN [Concomitant]
     Active Substance: BUPROPION HYDROCHLORIDE
     Indication: ANXIETY
     Route: 065
  14. METFORMIN [Concomitant]
     Active Substance: METFORMIN HYDROCHLORIDE
     Indication: DIABETES MELLITUS
     Route: 048

REACTIONS (24)
  - Intentional overdose [Recovered/Resolved]
  - Alcohol use [Unknown]
  - Nausea [Not Recovered/Not Resolved]
  - Suicidal behaviour [Unknown]
  - Swollen tongue [Unknown]
  - Headache [Not Recovered/Not Resolved]
  - Suicidal ideation [Unknown]
  - Emotional disorder [Not Recovered/Not Resolved]
  - Depression [Unknown]
  - Aggression [Unknown]
  - Abdominal pain upper [Unknown]
  - Pyrexia [Unknown]
  - Insomnia [Not Recovered/Not Resolved]
  - Suicide attempt [Recovered/Resolved]
  - Regurgitation [Unknown]
  - Feeling of despair [Unknown]
  - Chills [Unknown]
  - Fatigue [Unknown]
  - Hyperglycaemia [Not Recovered/Not Resolved]
  - Diarrhoea [Not Recovered/Not Resolved]
  - Laceration [Recovered/Resolved]
  - Decreased appetite [Unknown]
  - Mood swings [Unknown]
  - Crying [Unknown]

NARRATIVE: CASE EVENT DATE: 2016
